FAERS Safety Report 8151027-8 (Version None)
Quarter: 2012Q1

REPORT INFORMATION
  Report Type: 
  Country: None (occurrence: None)
  Receive Date: 20120220
  Receipt Date: 20120210
  Transmission Date: 20120608
  Serious: Yes (Hospitalization, Other)
  Sender: FDA-Public Use
  Company Number: US-ABBOTT-12P-163-0903761-00

PATIENT
  Sex: Male
  Weight: 59.02 kg

DRUGS (3)
  1. MERCAPTOPURINE [Concomitant]
     Indication: CROHN'S DISEASE
  2. HUMIRA [Suspect]
     Indication: CROHN'S DISEASE
     Dates: start: 20070101
  3. LIALDA [Concomitant]
     Indication: CROHN'S DISEASE

REACTIONS (1)
  - INTESTINAL STENOSIS [None]
